FAERS Safety Report 5480322-6 (Version None)
Quarter: 2007Q3

REPORT INFORMATION
  Report Type: 
  Country: None (occurrence: None)
  Receive Date: 20070913
  Receipt Date: 20060814
  Transmission Date: 20080115
  Serious: Yes (Other)
  Sender: FDA-Public Use
  Company Number: PHEH2006US09067

PATIENT
  Age: 71 Year
  Sex: Female
  Weight: 60.8 kg

DRUGS (8)
  1. DIOVAN [Suspect]
     Indication: HYPERTENSION
     Dosage: ORAL
     Route: 048
     Dates: start: 20060530
  2. DIOVAN [Suspect]
     Indication: HYPERTENSION
     Dosage: ORAL
     Route: 048
     Dates: start: 20060618
  3. LOTREL [Suspect]
     Indication: HYPERTENSION
     Dosage: 5/20MG, QD, ORAL
     Route: 048
     Dates: start: 20051104, end: 20060620
  4. ALLOPURINOL [Concomitant]
  5. ASPIRIN [Concomitant]
  6. GLUCOVANCE [Concomitant]
  7. VYTORIN [Concomitant]
  8. ALPHAGAN [Concomitant]

REACTIONS (1)
  - HYPOTENSION [None]
